FAERS Safety Report 5048341-1 (Version None)
Quarter: 2006Q3

REPORT INFORMATION
  Report Type: 
  Country: None (occurrence: None)
  Receive Date: 20060711
  Receipt Date: 20060601
  Transmission Date: 20061208
  Serious: Yes (Death, Other)
  Sender: FDA-Public Use
  Company Number: TH-BOEHRINGER INGELHEIM PHARMACEUTICALS, INC.-2006-DE-02847GD

PATIENT

DRUGS (4)
  1. NEVIRAPINE [Suspect]
     Indication: HIV INFECTION
     Dosage: 200 MG ONCE DAILY FOR 2 WEEKS, FOLLOWED BY 200 MG TWICE DAILY
  2. FLUCONAZOLE [Suspect]
     Indication: CRYPTOCOCCOSIS
     Dosage: 400 MG/WEEK
  3. FLUCONAZOLE [Suspect]
     Indication: PROPHYLAXIS
  4. ANTIRETROVIRAL DRUGS [Suspect]
     Indication: HIV INFECTION

REACTIONS (10)
  - ALANINE AMINOTRANSFERASE INCREASED [None]
  - ASPARTATE AMINOTRANSFERASE INCREASED [None]
  - BACTERIAL INFECTION [None]
  - CACHEXIA [None]
  - CRYPTOCOCCOSIS [None]
  - HEPATOTOXICITY [None]
  - MYCOBACTERIUM AVIUM COMPLEX INFECTION [None]
  - PNEUMONITIS [None]
  - RASH [None]
  - STEVENS-JOHNSON SYNDROME [None]
